FAERS Safety Report 9848829 (Version 2)
Quarter: 2014Q1

REPORT INFORMATION
  Report Type: Report from Study
  Country: CA (occurrence: CA)
  Receive Date: 20140128
  Receipt Date: 20140128
  Transmission Date: 20141002
  Serious: Yes (Hospitalization)
  Sender: FDA-Public Use
  Company Number: CA-JNJFOC-20131208701

PATIENT
  Age: 29 Year
  Sex: Female
  Weight: 59 kg

DRUGS (1)
  1. REMICADE [Suspect]
     Indication: COLITIS ULCERATIVE
     Dosage: RECEIVED 2 INFLIXIMAB INFUSIONS??AT WEEK 0, 2 AND 6
     Route: 042
     Dates: start: 20131024, end: 201311

REACTIONS (5)
  - Skin plaque [Not Recovered/Not Resolved]
  - Rash [Unknown]
  - Acne [Unknown]
  - Erythema [Not Recovered/Not Resolved]
  - Drug ineffective [Unknown]
